FAERS Safety Report 8722076 (Version 2)
Quarter: 2012Q4

REPORT INFORMATION
  Report Type: 
  Country: US (occurrence: US)
  Receive Date: 20120814
  Receipt Date: 20120904
  Transmission Date: 20130627
  Serious: Yes (Death, Hospitalization, Other)
  Sender: FDA-Public Use
  Company Number: US-ASTELLAS-2012US006836

PATIENT
  Age: 68 None
  Sex: Male

DRUGS (5)
  1. PROGRAF [Suspect]
     Indication: RENAL TRANSPLANT
     Dosage: 3 mg, UID/QD
     Dates: start: 20070709, end: 201111
  2. KAYEXALATE [Suspect]
     Indication: HYPERKALAEMIA
     Dosage: UNK
     Route: 065
     Dates: start: 20111125, end: 201111
  3. LASIX                              /00032601/ [Suspect]
     Indication: OEDEMA PERIPHERAL
     Dosage: UNK
     Route: 065
  4. CALCITRIOL [Suspect]
     Indication: PRODUCT USED FOR UNKNOWN INDICATION
     Dosage: UNK
     Route: 065
  5. MYFORTIC [Concomitant]
     Indication: RENAL TRANSPLANT
     Dosage: 360 mg, bid
     Route: 065
     Dates: start: 20070709

REACTIONS (25)
  - Renal tubular acidosis [Unknown]
  - Death [Fatal]
  - Small intestinal obstruction [Unknown]
  - Aortic stenosis [Unknown]
  - Overdose [Unknown]
  - Diastolic dysfunction [Unknown]
  - Malnutrition [Unknown]
  - Failure to thrive [Unknown]
  - Fluid overload [Unknown]
  - Hypotension [Unknown]
  - Renal failure acute [Unknown]
  - Enterobacter bacteraemia [Unknown]
  - Urinary tract infection [Unknown]
  - Clostridium difficile colitis [Unknown]
  - Asthenia [Unknown]
  - Hypercalcaemia [Unknown]
  - Dehydration [Unknown]
  - Sepsis [Unknown]
  - Atrial fibrillation [Unknown]
  - Atrial flutter [Unknown]
  - Anaemia [Unknown]
  - Pyelonephritis [Unknown]
  - Hypertension [Unknown]
  - Oedema peripheral [Unknown]
  - Diarrhoea [Recovered/Resolved]
